FAERS Safety Report 8819768 (Version 1)
Quarter: 2012Q4

REPORT INFORMATION
  Report Type: 
  Country: US (occurrence: US)
  Receive Date: 20121001
  Receipt Date: 20121001
  Transmission Date: 20130627
  Serious: Yes (Other)
  Sender: FDA-Public Use
  Company Number: US-ROCHE-1130061

PATIENT
  Age: 71 Year
  Sex: Female

DRUGS (7)
  1. HERCEPTIN [Suspect]
     Indication: BREAST CANCER METASTATIC
     Dosage: Loading dose
     Route: 065
     Dates: start: 19981214
  2. HERCEPTIN [Suspect]
     Dosage: Maintenance Dose
     Route: 065
  3. TAXOL [Concomitant]
     Route: 065
  4. ZOFRAN [Concomitant]
  5. DECADRON [Concomitant]
  6. BENADRYL [Concomitant]
  7. ZANTAC [Concomitant]

REACTIONS (5)
  - Dyspnoea [Unknown]
  - Fatigue [Unknown]
  - Pericardial effusion [Unknown]
  - Pleural effusion [Unknown]
  - Pyrexia [Unknown]
